FAERS Safety Report 4972703-1 (Version None)
Quarter: 2006Q1

REPORT INFORMATION
  Report Type: 
  Country: None (occurrence: None)
  Receive Date: 20060215
  Receipt Date: 20051017
  Transmission Date: 20060701
  Serious: No
  Sender: FDA-Public Use
  Company Number: USA0510111032

PATIENT
  Sex: Male

DRUGS (4)
  1. CIALIS [Suspect]
     Indication: ERECTILE DYSFUNCTION
     Dosage: 10 MG, ORAL
     Route: 048
     Dates: start: 20051001
  2. CLONAZEPAM [Concomitant]
  3. WELLBUTRIN [Concomitant]
  4. CLARITIN [Concomitant]

REACTIONS (1)
  - DRUG INEFFECTIVE [None]
